FAERS Safety Report 5354842-9 (Version None)
Quarter: 2007Q2

REPORT INFORMATION
  Report Type: 
  Country: None (occurrence: None)
  Receive Date: 20070611
  Receipt Date: 20070531
  Transmission Date: 20071010
  Serious: Yes (Death, Hospitalization)
  Sender: FDA-Public Use
  Company Number: CLOF-10524

PATIENT
  Age: 69 Year
  Sex: Male
  Weight: 93 kg

DRUGS (9)
  1. CLOFARABINE [Suspect]
     Indication: ACUTE MYELOID LEUKAEMIA
     Dosage: 30 MG DAILY IV
     Route: 042
     Dates: start: 20070207, end: 20070208
  2. CLOFARABINE [Suspect]
     Indication: ACUTE MYELOID LEUKAEMIA
     Dosage: 30 MG DAILY IV
     Dates: start: 20070214, end: 20070215
  3. CYCLOPHOSPHAMIDE [Suspect]
     Indication: ACUTE MYELOID LEUKAEMIA
     Dosage: 625 MG DAILY IV
     Route: 042
     Dates: start: 20070206, end: 20070207
  4. CYCLOPHOSPHAMIDE [Suspect]
     Indication: ACUTE MYELOID LEUKAEMIA
     Dosage: 1250 MG DAILY IV
     Route: 042
     Dates: start: 20070208, end: 20070208
  5. CYCLOPHOSPHAMIDE [Suspect]
     Indication: ACUTE MYELOID LEUKAEMIA
     Dosage: 1250 MG DAILY IV
     Route: 042
     Dates: start: 20070214, end: 20070215
  6. ACETAMINOPHEN [Concomitant]
  7. ALLOPURINOL [Concomitant]
  8. HYDROCORTISONE [Concomitant]
  9. MEPERIDINE HCL [Concomitant]

REACTIONS (17)
  - APLASIA [None]
  - CEREBRAL INFARCTION [None]
  - ENTEROCOCCAL SEPSIS [None]
  - FACIAL PALSY [None]
  - GASTRIC PERFORATION [None]
  - GASTRIC VOLVULUS [None]
  - GENERAL PHYSICAL HEALTH DETERIORATION [None]
  - LUNG INFILTRATION [None]
  - MUSCULAR WEAKNESS [None]
  - NEUTROPENIA [None]
  - PATHOGEN RESISTANCE [None]
  - RASH [None]
  - RENAL FAILURE [None]
  - RESPIRATORY DISTRESS [None]
  - RESPIRATORY FAILURE [None]
  - SEPTIC SHOCK [None]
  - VITREOUS FLOATERS [None]
